FAERS Safety Report 11843050 (Version 2)
Quarter: 2015Q4

REPORT INFORMATION
  Report Type: Spontaneous
  Country: JP (occurrence: JP)
  Receive Date: 20151216
  Receipt Date: 20151223
  Transmission Date: 20160305
  Serious: No
  Sender: FDA-Public Use
  Company Number: JP-BAUSCH-BL-2015-030267

PATIENT
  Age: 80 Year
  Sex: Male

DRUGS (1)
  1. BESELNA CREAM 5% [Suspect]
     Active Substance: IMIQUIMOD
     Indication: ACTINIC KERATOSIS
     Route: 061

REACTIONS (1)
  - Granuloma [Recovered/Resolved]
